FAERS Safety Report 4789372-6 (Version None)
Quarter: 2005Q3

REPORT INFORMATION
  Report Type: 
  Country: None (occurrence: None)
  Receive Date: 20050929
  Receipt Date: 20050801
  Transmission Date: 20060218
  Serious: No
  Sender: FDA-Public Use
  Company Number: 05P-163-0307126-00

PATIENT
  Sex: Female

DRUGS (6)
  1. HUMIRA [Suspect]
     Indication: RHEUMATOID ARTHRITIS
     Dosage: 40 MG, 1 IN 2 WK, SUBCUTANEOUS
     Route: 058
     Dates: start: 20050718, end: 20050801
  2. AMOXICILLIN [Concomitant]
  3. PREDNISONE [Concomitant]
  4. FEXOFENADINE HYDROCHLORIDE [Concomitant]
  5. PROPACET 100 [Concomitant]
  6. ALLERGY SHOTS [Concomitant]

REACTIONS (2)
  - COUGH [None]
  - DYSPNOEA [None]
